FAERS Safety Report 4427479-3 (Version None)
Quarter: 2004Q3

REPORT INFORMATION
  Report Type: 
  Country: None (occurrence: None)
  Receive Date: 20040812
  Receipt Date: 20040802
  Transmission Date: 20050211
  Serious: Yes (Other)
  Sender: FDA-Public Use
  Company Number: 2004226319US

PATIENT
  Age: 62 Year
  Sex: Male

DRUGS (1)
  1. DELTASONE [Suspect]
     Indication: RHEUMATOID ARTHRITIS
     Dosage: 20 MG, QD, ORAL
     Route: 048

REACTIONS (6)
  - ACUTE MYOCARDIAL INFARCTION [None]
  - CORONARY ARTERY OCCLUSION [None]
  - MITRAL VALVE REPLACEMENT [None]
  - PAPILLARY MUSCLE INFARCTION [None]
  - PAPILLARY MUSCLE RUPTURE [None]
  - PULMONARY OEDEMA [None]
